FAERS Safety Report 9054201 (Version 1)
Quarter: 2013Q1

REPORT INFORMATION
  Report Type: Report from Study
  Country: GB (occurrence: GB)
  Receive Date: 20130208
  Receipt Date: 20130208
  Transmission Date: 20140127
  Serious: Yes (Hospitalization)
  Sender: FDA-Public Use
  Company Number: GB-ABBOTT-12P-167-0964385-00

PATIENT
  Age: 81 None
  Sex: Female
  Weight: 73 kg

DRUGS (2)
  1. HUMIRA 40 MG/ 0.8 ML PRE-FILLED SYRINGE [Suspect]
     Indication: RHEUMATOID ARTHRITIS
     Route: 058
     Dates: start: 20070530, end: 20120115
  2. METHOTREXATE [Concomitant]
     Indication: RHEUMATOID ARTHRITIS
     Dates: start: 20101126

REACTIONS (7)
  - Haematuria [Unknown]
  - Fall [Unknown]
  - Pneumonia [Unknown]
  - Pancreatic neoplasm [Unknown]
  - Urinary retention [Unknown]
  - Fall [Unknown]
  - Cognitive disorder [Unknown]
